FAERS Safety Report 5046883-6 (Version None)
Quarter: 2006Q3

REPORT INFORMATION
  Report Type: 
  Country: None (occurrence: None)
  Receive Date: 20060710
  Receipt Date: 20060328
  Transmission Date: 20061208
  Serious: Yes (Hospitalization)
  Sender: FDA-Public Use
  Company Number: DE-ABBOTT-06P-062-0329479-00

PATIENT
  Sex: Female

DRUGS (6)
  1. SEVOFLURANE [Suspect]
     Indication: ANAESTHESIA
     Route: 055
     Dates: start: 20051230, end: 20051230
  2. CONCEPLAN [Suspect]
     Indication: CONTRACEPTION
     Route: 048
     Dates: start: 20020101, end: 20060101
  3. IBUPROFEN [Suspect]
     Indication: PAIN
     Route: 048
  4. HEPARIN-FRACTION, SODIUM SALT [Suspect]
     Indication: THROMBOSIS PROPHYLAXIS
     Route: 048
  5. PROPOFOL [Concomitant]
     Indication: ANAESTHESIA
     Route: 042
     Dates: start: 20051230, end: 20051230
  6. REMIFENTANIL HYDROCHLORIDE [Concomitant]
     Indication: ANAESTHESIA
     Route: 042
     Dates: start: 20051230, end: 20051230

REACTIONS (2)
  - JAUNDICE [None]
  - LIVER FUNCTION TEST ABNORMAL [None]
